FAERS Safety Report 7062390-3 (Version None)
Quarter: 2010Q4

REPORT INFORMATION
  Report Type: 
  Country: None (occurrence: None)
  Receive Date: 20101026
  Receipt Date: 20101021
  Transmission Date: 20110411
  Serious: Yes (Hospitalization)
  Sender: FDA-Public Use
  Company Number: JP-ABBOTT-10P-087-0671379-00

PATIENT
  Sex: Male

DRUGS (4)
  1. KALETRA [Suspect]
     Indication: HIV INFECTION
     Route: 048
     Dates: start: 20020701
  2. DIDANOSINE [Suspect]
     Indication: HIV INFECTION
     Dates: start: 20020701
  3. EFAVIRENZ [Suspect]
     Indication: HIV INFECTION
     Dates: start: 20020701
  4. KALETRA [Suspect]
     Indication: HIV INFECTION

REACTIONS (2)
  - GLOMERULONEPHRITIS MEMBRANOUS [None]
  - IMMUNE RECONSTITUTION SYNDROME [None]
